FAERS Safety Report 20723899 (Version 2)
Quarter: 2022Q2

REPORT INFORMATION
  Report Type: Spontaneous
  Country: FR (occurrence: None)
  Receive Date: 20220419
  Receipt Date: 20220428
  Transmission Date: 20220721
  Serious: Yes (Other)
  Sender: FDA-Public Use
  Company Number: FR-ROCHE-3076557

PATIENT
  Age: 57 Year
  Sex: Female

DRUGS (1)
  1. OCREVUS [Suspect]
     Active Substance: OCRELIZUMAB
     Indication: Multiple sclerosis
     Dosage: 300MG/10M, DATE OF LAST ADMINISTRATION PRIOR TO THE CANCER DIAGNOSIS: 02/FEB/2022
     Route: 042
     Dates: start: 20200611

REACTIONS (2)
  - Gastrointestinal carcinoma [Unknown]
  - Rectal adenocarcinoma [Unknown]

NARRATIVE: CASE EVENT DATE: 20220330
